FAERS Safety Report 6626028-9 (Version None)
Quarter: 2010Q1

REPORT INFORMATION
  Report Type: 
  Country: None (occurrence: None)
  Receive Date: 20100310
  Receipt Date: 20100216
  Transmission Date: 20100710
  Serious: No
  Sender: FDA-Public Use
  Company Number: US-BAYER-201015295NA

PATIENT
  Age: 55 Year
  Sex: Female
  Weight: 79 kg

DRUGS (3)
  1. MAGNEVIST [Suspect]
     Indication: NUCLEAR MAGNETIC RESONANCE IMAGING
     Dosage: AS USED: 16 ML  UNIT DOSE: 20 ML
     Route: 042
     Dates: start: 20100216, end: 20100216
  2. BENADRYL [Concomitant]
  3. PREDNISONE [Concomitant]

REACTIONS (2)
  - NAUSEA [None]
  - VOMITING [None]
